FAERS Safety Report 12171592 (Version 2)
Quarter: 2016Q1

REPORT INFORMATION
  Report Type: Report from Study
  Country: US (occurrence: US)
  Receive Date: 20160311
  Receipt Date: 20160320
  Transmission Date: 20160526
  Serious: Yes (Other)
  Sender: FDA-Public Use
  Company Number: US-BIOGEN-2015BI069348

PATIENT
  Sex: Female

DRUGS (3)
  1. TECFIDERA [Suspect]
     Active Substance: DIMETHYL FUMARATE
     Route: 048
     Dates: start: 20140507, end: 20140514
  2. TECFIDERA [Suspect]
     Active Substance: DIMETHYL FUMARATE
     Indication: MULTIPLE SCLEROSIS
     Route: 048
     Dates: start: 20140507, end: 20150201
  3. TECFIDERA [Suspect]
     Active Substance: DIMETHYL FUMARATE
     Route: 048
     Dates: end: 20150412

REACTIONS (21)
  - Hypersensitivity [Recovered/Resolved]
  - Blindness [Recovered/Resolved]
  - Retinal tear [Recovered/Resolved]
  - Multiple sclerosis [Not Recovered/Not Resolved]
  - Anal incontinence [Recovered/Resolved]
  - Staphylococcal infection [Recovered/Resolved]
  - Migraine [Recovered/Resolved]
  - Visual acuity reduced [Not Recovered/Not Resolved]
  - Muscle spasms [Unknown]
  - Memory impairment [Not Recovered/Not Resolved]
  - Brain oedema [Recovered/Resolved]
  - Headache [Recovered/Resolved]
  - Mobility decreased [Recovered/Resolved]
  - Flushing [Recovered/Resolved]
  - Diarrhoea [Recovered/Resolved]
  - Dyspnoea [Recovered/Resolved]
  - Gait disturbance [Not Recovered/Not Resolved]
  - Skin lesion [Recovered/Resolved]
  - Rash generalised [Recovered/Resolved]
  - Anaemia [Unknown]
  - Lymphocyte count decreased [Recovered/Resolved]

NARRATIVE: CASE EVENT DATE: 2014
